FAERS Safety Report 6059621-5 (Version None)
Quarter: 2009Q1

REPORT INFORMATION
  Report Type: 
  Country: None (occurrence: None)
  Receive Date: 20090130
  Receipt Date: 20090119
  Transmission Date: 20090719
  Serious: Yes (Death, Hospitalization)
  Sender: FDA-Public Use
  Company Number: RS-ROCHE-609173

PATIENT
  Age: 76 Year
  Sex: Male

DRUGS (8)
  1. CAPECITABINE [Suspect]
     Dosage: 3000 MG IN DIVIDED DOSES
     Route: 065
     Dates: start: 20040301
  2. CAPECITABINE [Suspect]
     Dosage: REDUCED DOSE FROM 30% TO 2000 MG DAILY IN DIVIDED DOSES
     Route: 065
  3. OXALIPLATIN [Suspect]
     Route: 065
     Dates: start: 20040301
  4. OXALIPLATIN [Suspect]
     Route: 065
  5. LEUCOVORIN [Suspect]
     Route: 065
  6. FLUOROURACIL [Suspect]
     Route: 065
  7. IRINOTECAN HCL [Suspect]
     Dosage: SECOND LINE
     Route: 065
  8. MITOMYCIN [Suspect]
     Dosage: FOUTH LINE
     Route: 065

REACTIONS (2)
  - ANGINA PECTORIS [None]
  - COLORECTAL CANCER METASTATIC [None]
